FAERS Safety Report 5377090-5 (Version None)
Quarter: 2007Q3

REPORT INFORMATION
  Report Type: 
  Country: None (occurrence: None)
  Receive Date: 20070703
  Receipt Date: 20070622
  Transmission Date: 20080115
  Serious: Yes (Life-Threatening)
  Sender: FDA-Public Use
  Company Number: JP-BAXTER-2007BH005166

PATIENT
  Age: 60 Year
  Sex: Male

DRUGS (18)
  1. BREVIBLOC [Suspect]
     Indication: BLOOD PRESSURE INCREASED
     Route: 042
  2. BREVIBLOC [Suspect]
     Route: 042
     Dates: start: 20060929, end: 20060929
  3. BREVIBLOC [Suspect]
     Route: 042
     Dates: start: 20060929, end: 20060929
  4. NEOSTIGMINE [Suspect]
     Indication: NEUROMUSCULAR BLOCKADE REVERSAL
     Route: 065
     Dates: start: 20060929, end: 20060929
  5. DIGOXIN [Suspect]
     Indication: ATRIAL FIBRILLATION
     Dosage: DOSE UNIT:UNKNOWN
     Route: 065
  6. FENTANYL CITRATE [Suspect]
     Indication: ANAESTHESIA
     Route: 042
     Dates: start: 20060929, end: 20060929
  7. AMLODIPINE [Concomitant]
     Indication: DRUG USE FOR UNKNOWN INDICATION
     Dosage: DOSE UNIT:UNKNOWN
     Route: 065
  8. LOSARTAN POTASSIUM [Concomitant]
     Indication: DRUG USE FOR UNKNOWN INDICATION
     Dosage: DOSE UNIT:UNKNOWN
     Route: 065
  9. FAMOTIDINE [Concomitant]
     Indication: DRUG USE FOR UNKNOWN INDICATION
     Dosage: DOSE UNIT:UNKNOWN
     Route: 065
  10. NATEGLINIDE [Concomitant]
     Indication: DRUG USE FOR UNKNOWN INDICATION
     Dosage: DOSE UNIT:UNKNOWN
     Route: 065
  11. ACARBOSE [Concomitant]
     Indication: DRUG USE FOR UNKNOWN INDICATION
     Dosage: DOSE UNIT:UNKNOWN
     Route: 065
  12. NICARDIPINE HYDROCHLORIDE [Concomitant]
     Indication: DRUG USE FOR UNKNOWN INDICATION
     Route: 042
     Dates: start: 20060929, end: 20060929
  13. ATROPINE [Concomitant]
     Indication: DRUG USE FOR UNKNOWN INDICATION
     Route: 042
     Dates: start: 20060929, end: 20060929
  14. SEVORANE [Concomitant]
     Indication: DRUG USE FOR UNKNOWN INDICATION
     Dosage: DOSE UNIT:UNKNOWN
     Route: 065
     Dates: start: 20060929, end: 20060929
  15. NITROUS OXIDE W/ OXYGEN [Concomitant]
     Indication: DRUG USE FOR UNKNOWN INDICATION
     Dosage: DOSE UNIT:UNKNOWN
     Route: 065
     Dates: start: 20060929, end: 20060929
  16. THIOPENTONE [Concomitant]
     Indication: DRUG USE FOR UNKNOWN INDICATION
     Dosage: DOSE UNIT:UNKNOWN
     Route: 065
     Dates: start: 20060929, end: 20060929
  17. VECURONIUM BROMIDE [Concomitant]
     Indication: DRUG USE FOR UNKNOWN INDICATION
     Dosage: DOSE UNIT:UNKNOWN
     Route: 065
     Dates: start: 20060929, end: 20060929
  18. CEFAZOLIN SODIUM [Concomitant]
     Indication: DRUG USE FOR UNKNOWN INDICATION
     Dosage: DOSE UNIT:UNKNOWN
     Route: 065
     Dates: start: 20060929, end: 20060929

REACTIONS (2)
  - BRADYCARDIA [None]
  - CARDIAC ARREST [None]
